FAERS Safety Report 8652575 (Version 3)
Quarter: 2012Q4

REPORT INFORMATION
  Report Type: Report from Study
  Country: JP (occurrence: JP)
  Receive Date: 20120706
  Receipt Date: 20121101
  Transmission Date: 20130627
  Serious: Yes (Death, Hospitalization, Other)
  Sender: FDA-Public Use
  Company Number: JP-ROCHE-1082967

PATIENT
  Age: 79 Year
  Sex: Female
  Weight: 60 kg

DRUGS (30)
  1. TOCILIZUMAB [Suspect]
     Indication: CASTLEMAN^S DISEASE
     Route: 041
     Dates: start: 20110304, end: 20120619
  2. TOCILIZUMAB [Suspect]
     Indication: CASTLEMAN^S DISEASE
  3. PREDNISOLONE [Suspect]
     Indication: CASTLEMAN^S DISEASE
     Route: 048
     Dates: end: 20110524
  4. PREDNISOLONE [Suspect]
     Indication: CASTLEMAN^S DISEASE
     Route: 048
     Dates: start: 20110525, end: 20110719
  5. PREDNISOLONE [Suspect]
     Indication: CASTLEMAN^S DISEASE
     Route: 048
     Dates: start: 20110720, end: 20120117
  6. LASIX [Concomitant]
     Indication: HYPERTENSION
     Route: 048
     Dates: end: 20110606
  7. NERIPROCT [Concomitant]
     Indication: HAEMORRHOIDS
     Dosage: One-twice/day
     Route: 054
     Dates: end: 20120619
  8. TAPAZOL [Concomitant]
     Indication: PROPHYLAXIS
     Route: 048
     Dates: end: 20120619
  9. SULFAMETHOXAZOLE/TRIMETHOPRIM [Concomitant]
     Indication: PROPHYLAXIS
     Route: 048
     Dates: end: 20120619
  10. BONALON [Concomitant]
     Indication: OSTEOPOROSIS
     Route: 048
     Dates: end: 20120619
  11. DIOVAN [Concomitant]
     Indication: HYPERTENSION
     Route: 048
  12. DIOVAN [Concomitant]
     Indication: HYPERTENSION
     Dosage: 80-160mg/once/day
     Route: 048
     Dates: start: 20110705, end: 20120619
  13. ISCOTIN [Concomitant]
     Indication: ANTIBIOTIC PROPHYLAXIS
     Route: 048
     Dates: end: 20120619
  14. LIPOVAS [Concomitant]
     Indication: HYPERLIPIDAEMIA
     Route: 048
  15. FUROSEMIDE [Concomitant]
     Indication: OEDEMA
     Route: 048
     Dates: start: 20110607, end: 20110801
  16. FUROSEMIDE [Concomitant]
     Indication: OEDEMA
     Route: 048
     Dates: start: 20110802, end: 20120103
  17. FUROSEMIDE [Concomitant]
     Indication: OEDEMA
     Route: 048
     Dates: start: 20120104, end: 20120213
  18. FUROSEMIDE [Concomitant]
     Indication: OEDEMA
     Route: 048
     Dates: start: 20120214, end: 20120227
  19. FUROSEMIDE [Concomitant]
     Indication: OEDEMA
     Route: 048
     Dates: start: 20120228, end: 20120619
  20. RINDERON [Concomitant]
     Indication: CASTLEMAN^S DISEASE
     Route: 048
     Dates: start: 20120118, end: 20120131
  21. RINDERON [Concomitant]
     Indication: CASTLEMAN^S DISEASE
     Route: 048
     Dates: start: 20120201, end: 20120214
  22. RINDERON [Concomitant]
     Indication: CASTLEMAN^S DISEASE
     Route: 048
     Dates: start: 20120215, end: 20120228
  23. RINDERON [Concomitant]
     Indication: CASTLEMAN^S DISEASE
     Dosage: 4-5.5mg/once/day
     Route: 048
     Dates: start: 20120229, end: 20120619
  24. ALDACTONE A [Concomitant]
     Indication: HYPERTENSION
     Dosage: Dosage is uncertain.
     Route: 048
     Dates: start: 20111025, end: 20120117
  25. FUNGIZONE [Concomitant]
     Indication: CANDIDIASIS
     Route: 048
     Dates: end: 20120619
  26. HERBESSER R [Concomitant]
     Indication: HYPERTENSION
     Route: 048
     Dates: end: 20120619
  27. EXFORGE [Concomitant]
     Indication: HYPERTENSION
     Route: 048
     Dates: start: 20110705, end: 20120619
  28. MAGLAX [Concomitant]
     Indication: PROPHYLAXIS
     Route: 048
     Dates: end: 20120619
  29. MAGLAX [Concomitant]
     Indication: PROPHYLAXIS
     Route: 048
  30. GLUFAST [Concomitant]
     Indication: HYPERLIPIDAEMIA
     Route: 048
     Dates: end: 20120619

REACTIONS (9)
  - Hepatic function abnormal [Not Recovered/Not Resolved]
  - Oedema [Not Recovered/Not Resolved]
  - Eosinophil count increased [Not Recovered/Not Resolved]
  - Sudden death [Fatal]
  - Urinary tract infection [Recovering/Resolving]
  - Sepsis [Recovering/Resolving]
  - Gastrointestinal haemorrhage [Unknown]
  - Deep vein thrombosis [Fatal]
  - Pulmonary embolism [Fatal]
